FAERS Safety Report 20863495 (Version 1)
Quarter: 2022Q2

REPORT INFORMATION
  Report Type: Spontaneous
  Country: CN (occurrence: CN)
  Receive Date: 20220523
  Receipt Date: 20220523
  Transmission Date: 20220721
  Serious: Yes (Hospitalization)
  Sender: FDA-Public Use
  Company Number: CN-PFIZER INC-202200738941

PATIENT
  Age: 81 Year
  Sex: Male
  Weight: 60 kg

DRUGS (5)
  1. LIPITOR [Suspect]
     Active Substance: ATORVASTATIN CALCIUM
     Indication: Plaque shift
     Dosage: 20 MG, 1X/DAY
     Route: 048
     Dates: start: 20220125, end: 20220209
  2. SODIUM CHLORIDE [Concomitant]
     Active Substance: SODIUM CHLORIDE
     Indication: Vehicle solution use
     Dosage: 100 ML, 3X/DAY
     Route: 041
     Dates: start: 20220131, end: 20220205
  3. MEROPENEM [Concomitant]
     Active Substance: MEROPENEM
     Indication: Anti-infective therapy
     Dosage: 1 G, 3X/DAY
     Route: 041
     Dates: start: 20220131, end: 20220205
  4. AMBROXOL HYDROCHLORIDE AND GLUCOSE [Concomitant]
     Indication: Productive cough
     Dosage: 30 MG, 2X/DAY
     Route: 041
     Dates: start: 20220131, end: 20220205
  5. PLAVIX [Concomitant]
     Active Substance: CLOPIDOGREL BISULFATE
     Indication: Antiplatelet therapy
     Dosage: 75 MG, 1X/DAY
     Route: 048
     Dates: start: 20220125, end: 20220208

REACTIONS (1)
  - Rash [Recovering/Resolving]

NARRATIVE: CASE EVENT DATE: 20220205
